FAERS Safety Report 12784994 (Version 2)
Quarter: 2018Q3

REPORT INFORMATION
  Report Type: Spontaneous
  Country: US (occurrence: US)
  Receive Date: 20160927
  Receipt Date: 20180723
  Transmission Date: 20181010
  Serious: Yes (Hospitalization, Other)
  Sender: FDA-Public Use
  Company Number: US-BIOGEN-2010BI021799

PATIENT
  Sex: Female

DRUGS (3)
  1. AVONEX [Suspect]
     Active Substance: INTERFERON BETA-1A
     Route: 030
     Dates: start: 2003, end: 2003
  2. AVONEX [Suspect]
     Active Substance: INTERFERON BETA-1A
     Route: 030
     Dates: start: 2003
  3. AVONEX [Suspect]
     Active Substance: INTERFERON BETA-1A
     Indication: MULTIPLE SCLEROSIS
     Route: 030
     Dates: start: 19961005, end: 2003

REACTIONS (12)
  - Nasopharyngitis [Not Recovered/Not Resolved]
  - Blood pressure increased [Unknown]
  - Mobility decreased [Unknown]
  - Pyrexia [Unknown]
  - Gait disturbance [Not Recovered/Not Resolved]
  - Device breakage [Recovered/Resolved]
  - Malaise [Unknown]
  - Lumbar vertebral fracture [Not Recovered/Not Resolved]
  - Back pain [Unknown]
  - Staphylococcal infection [Recovered/Resolved]
  - Pulmonary embolism [Unknown]
  - Lung infection [Not Recovered/Not Resolved]

NARRATIVE: CASE EVENT DATE: 2003
